FAERS Safety Report 19050516 (Version 7)
Quarter: 2021Q3

REPORT INFORMATION
  Report Type: Spontaneous
  Country: FR (occurrence: FR)
  Receive Date: 20210324
  Receipt Date: 20210725
  Transmission Date: 20211014
  Serious: Yes (Other)
  Sender: FDA-Public Use
  Company Number: FR-CELLTRION INC.-2021FR003470

PATIENT

DRUGS (54)
  1. THALIDOMIDE [Suspect]
     Active Substance: THALIDOMIDE
     Indication: STILL^S DISEASE
     Route: 065
  2. ANAKINRA [Concomitant]
     Active Substance: ANAKINRA
     Indication: STILL^S DISEASE
     Route: 065
  3. INDOMETHACIN [INDOMETACIN SODIUM] [Concomitant]
     Active Substance: INDOMETHACIN SODIUM
     Indication: STILL^S DISEASE
     Dosage: UNK
  4. INFLIXIMAB (UNKNOWN) [Suspect]
     Active Substance: INFLIXIMAB
     Indication: GRAFT VERSUS HOST DISEASE IN GASTROINTESTINAL TRACT
     Dosage: 75 MG/4 WEEKS (1 DOSE 4 WEEKS)
     Route: 065
  5. FLUDARABINE PHOSPHATE. [Suspect]
     Active Substance: FLUDARABINE PHOSPHATE
     Indication: PROPHYLAXIS AGAINST TRANSPLANT REJECTION
     Dosage: 160 MG/M2
     Route: 065
  6. PREDNISOLONE. [Suspect]
     Active Substance: PREDNISOLONE
     Dosage: UNKNOWN TAPERING DOSE
     Route: 065
  7. METHOTREXATE. [Suspect]
     Active Substance: METHOTREXATE
     Dosage: 5 MG/WEEK (1 DOSE WEEKLY)
     Route: 065
  8. CYCLOPHOSPHAMIDE. [Concomitant]
     Active Substance: CYCLOPHOSPHAMIDE
     Indication: PROPHYLAXIS AGAINST GRAFT VERSUS HOST DISEASE
     Dosage: 50 MG/KG (DAY 3 AND DAY 4)
     Route: 065
  9. TOCILIZUMAB. [Concomitant]
     Active Substance: TOCILIZUMAB
     Dosage: 50 MG, QD
     Route: 065
  10. ANAKINRA [Suspect]
     Active Substance: ANAKINRA
     Indication: STILL^S DISEASE
  11. ALEMTUZUMAB [Suspect]
     Active Substance: ALEMTUZUMAB
     Indication: ALLOGENIC STEM CELL TRANSPLANTATION
     Dosage: 0.5 MG/KG (D?11, D?10)
  12. FLUDARABINE PHOSPHATE. [Suspect]
     Active Substance: FLUDARABINE PHOSPHATE
     Indication: STILL^S DISEASE
     Dosage: 160 MG/M2
  13. ADALIMUMAB [Suspect]
     Active Substance: ADALIMUMAB
     Indication: STILL^S DISEASE
     Dosage: UNK
     Route: 065
  14. ORACILLIN [PROPICILLIN POTASSIUM] [Suspect]
     Active Substance: PROPICILLIN POTASSIUM
     Indication: PROPHYLAXIS
     Route: 065
  15. RITUXIMAB (UNKNOWN) [Concomitant]
     Active Substance: RITUXIMAB
     Indication: STILL^S DISEASE
     Dosage: UNK
  16. CYCLOSPORIN A [Concomitant]
     Active Substance: CYCLOSPORINE
     Indication: PROPHYLAXIS AGAINST GRAFT VERSUS HOST DISEASE
     Route: 065
  17. ACYCLOVIR. [Concomitant]
     Active Substance: ACYCLOVIR
  18. HYDROCORTISONE. [Concomitant]
     Active Substance: HYDROCORTISONE
  19. PREDNISOLONE. [Suspect]
     Active Substance: PREDNISOLONE
     Dosage: 2 MG/KG, QD
     Route: 065
  20. INDOMETHACIN [INDOMETACIN] [Suspect]
     Active Substance: INDOMETHACIN
     Indication: STILL^S DISEASE
     Dosage: 25 MG, QD
     Route: 065
  21. RITUXIMAB (UNKNOWN) [Concomitant]
     Active Substance: RITUXIMAB
     Indication: STILL^S DISEASE
     Dosage: 375 MG/M2
     Route: 065
  22. RITUXIMAB (UNKNOWN) [Concomitant]
     Active Substance: RITUXIMAB
     Indication: BONE MARROW CONDITIONING REGIMEN
     Dosage: UNK
  23. BUSULFAN. [Concomitant]
     Active Substance: BUSULFAN
     Indication: BONE MARROW CONDITIONING REGIMEN
     Dosage: UNK
  24. BUSULFAN. [Concomitant]
     Active Substance: BUSULFAN
     Indication: PROPHYLAXIS AGAINST TRANSPLANT REJECTION
     Dosage: UNK
     Route: 065
  25. ALEMTUZUMAB [Concomitant]
     Active Substance: ALEMTUZUMAB
     Indication: PROPHYLAXIS AGAINST TRANSPLANT REJECTION
     Dosage: 0.5 MG/KG
     Route: 065
  26. MYCOPHENOLATE MOFETIL. [Concomitant]
     Active Substance: MYCOPHENOLATE MOFETIL
     Indication: PROPHYLAXIS AGAINST GRAFT VERSUS HOST DISEASE
     Dosage: ON DAY 5
     Route: 065
  27. FLUDARABINE [Concomitant]
     Active Substance: FLUDARABINE PHOSPHATE
     Indication: STILL^S DISEASE
     Dosage: UNK
     Route: 065
  28. INFLIXIMAB (UNKNOWN) [Suspect]
     Active Substance: INFLIXIMAB
     Dosage: FOR GRADE III GASTROINTESTINAL GVHD
  29. TOCILIZUMAB. [Suspect]
     Active Substance: TOCILIZUMAB
     Indication: STILL^S DISEASE
  30. METHYLPREDNISOLONE. [Suspect]
     Active Substance: METHYLPREDNISOLONE
     Indication: STILL^S DISEASE
     Dosage: UNK
  31. PREDNISOLONE. [Suspect]
     Active Substance: PREDNISOLONE
     Dosage: 1 MG/KG, QD TAPERED
     Route: 065
  32. THALIDOMIDE [Suspect]
     Active Substance: THALIDOMIDE
     Dosage: 50 MG/DAY
     Route: 065
  33. FLUDARABINE [Concomitant]
     Active Substance: FLUDARABINE PHOSPHATE
     Indication: ALLOGENIC STEM CELL TRANSPLANTATION
     Dosage: 160 MG/M2 (D?5, D?4, D?3, D?2)
     Route: 065
  34. CYCLOSPORIN [Suspect]
     Active Substance: CYCLOSPORINE
     Indication: PROPHYLAXIS AGAINST GRAFT VERSUS HOST DISEASE
     Dosage: ON DAY 5
     Route: 065
  35. ALEMTUZUMAB [Suspect]
     Active Substance: ALEMTUZUMAB
     Indication: STILL^S DISEASE
     Dosage: 0.5 MG/KG
  36. ALEMTUZUMAB [Suspect]
     Active Substance: ALEMTUZUMAB
     Indication: BONE MARROW CONDITIONING REGIMEN
     Dosage: UNK
  37. FLUDARABINE PHOSPHATE. [Suspect]
     Active Substance: FLUDARABINE PHOSPHATE
     Indication: BONE MARROW CONDITIONING REGIMEN
  38. METHYLPREDNISOLONE. [Suspect]
     Active Substance: METHYLPREDNISOLONE
     Dosage: UNK
     Route: 065
  39. RITUXIMAB (UNKNOWN) [Concomitant]
     Active Substance: RITUXIMAB
     Indication: PROPHYLAXIS AGAINST TRANSPLANT REJECTION
     Dosage: 375 MG/M2
     Route: 065
  40. MYCOPHENOLATE MOFETIL. [Concomitant]
     Active Substance: MYCOPHENOLATE MOFETIL
     Dosage: UNK
     Route: 065
  41. TOCILIZUMAB. [Concomitant]
     Active Substance: TOCILIZUMAB
     Indication: STILL^S DISEASE
     Route: 065
  42. INDOMETHACIN [INDOMETACIN SODIUM] [Concomitant]
     Active Substance: INDOMETHACIN SODIUM
     Dosage: 25 MG/M2, QD
     Route: 065
  43. INFLIXIMAB (UNKNOWN) [Suspect]
     Active Substance: INFLIXIMAB
     Indication: STILL^S DISEASE
     Dosage: UNK
  44. FLUDARABINE PHOSPHATE. [Suspect]
     Active Substance: FLUDARABINE PHOSPHATE
     Indication: BONE MARROW CONDITIONING REGIMEN
  45. CYCLOSPORIN [Suspect]
     Active Substance: CYCLOSPORINE
     Dosage: UNK
     Route: 065
  46. BUSULFAN. [Concomitant]
     Active Substance: BUSULFAN
     Indication: STILL^S DISEASE
     Dosage: AUC OF 25,638 MICROM/MIN
  47. FLUDARABINE [Concomitant]
     Active Substance: FLUDARABINE PHOSPHATE
     Indication: BONE MARROW CONDITIONING REGIMEN
     Dosage: UNK
     Route: 065
  48. CANAKINUMAB. [Concomitant]
     Active Substance: CANAKINUMAB
     Indication: STILL^S DISEASE
     Dosage: UNK
     Route: 065
  49. PREDNISOLONE. [Suspect]
     Active Substance: PREDNISOLONE
     Indication: STILL^S DISEASE
     Dosage: DOSE BELOW 1 MG/KG
     Route: 065
  50. METHOTREXATE. [Suspect]
     Active Substance: METHOTREXATE
     Indication: STILL^S DISEASE
     Dosage: UNK
  51. METHOTREXATE. [Suspect]
     Active Substance: METHOTREXATE
     Indication: PROPHYLAXIS AGAINST TRANSPLANT REJECTION
     Dosage: 5 MG/WEEK
     Route: 065
  52. RITUXIMAB (UNKNOWN) [Concomitant]
     Active Substance: RITUXIMAB
     Indication: ALLOGENIC STEM CELL TRANSPLANTATION
     Dosage: 375 MG/M2 (D?12)
     Route: 065
  53. BUSULFAN. [Concomitant]
     Active Substance: BUSULFAN
     Indication: ALLOGENIC STEM CELL TRANSPLANTATION
     Dosage: D?9, D?8, D?7, D?6 WITH AREA UNDER CURVE (AUC) OF 25.63
     Route: 065
  54. ALEMTUZUMAB [Concomitant]
     Active Substance: ALEMTUZUMAB
     Indication: BONE MARROW CONDITIONING REGIMEN
     Dosage: 0.5 MG/M2
     Route: 065

REACTIONS (41)
  - Hepatic cytolysis [Unknown]
  - Infection [Unknown]
  - Thrombocytopenia [Unknown]
  - Condition aggravated [Unknown]
  - Varicella zoster virus infection [Unknown]
  - Juvenile idiopathic arthritis [Unknown]
  - Clostridium difficile colitis [Recovered/Resolved]
  - Immune thrombocytopenia [Recovering/Resolving]
  - Focal nodular hyperplasia [Unknown]
  - Autoimmune thyroiditis [Unknown]
  - Red blood cell sedimentation rate increased [Unknown]
  - Superinfection bacterial [Unknown]
  - Osteopenia [Unknown]
  - Obliterative bronchiolitis [Unknown]
  - Cushingoid [Unknown]
  - Graft versus host disease in gastrointestinal tract [Recovered/Resolved]
  - Actinomycotic sepsis [Unknown]
  - Drug resistance [Unknown]
  - Growth retardation [Recovering/Resolving]
  - Herpes zoster infection neurological [Unknown]
  - Bacterial sepsis [Unknown]
  - Graft versus host disease in skin [Recovering/Resolving]
  - C-reactive protein increased [Unknown]
  - Pulmonary function test abnormal [Recovered/Resolved]
  - Aplasia [Recovered/Resolved]
  - Secondary adrenocortical insufficiency [Unknown]
  - Toxicity to various agents [Unknown]
  - Off label use [Unknown]
  - Hyperplasia [Unknown]
  - Hypothyroidism [Unknown]
  - Cellulitis staphylococcal [Unknown]
  - Joint effusion [Recovered/Resolved]
  - Hypertension [Unknown]
  - Impaired quality of life [Unknown]
  - Still^s disease [Recovering/Resolving]
  - Inflammation [Unknown]
  - Arthralgia [Unknown]
  - Herpes zoster [Unknown]
  - Ill-defined disorder [Unknown]
  - Infection reactivation [Unknown]
  - Vitiligo [Unknown]
